FAERS Safety Report 26040359 (Version 2)
Quarter: 2025Q4

REPORT INFORMATION
  Report Type: Spontaneous
  Country: GB (occurrence: GB)
  Receive Date: 20251113
  Receipt Date: 20251121
  Transmission Date: 20260117
  Serious: Yes (Other)
  Sender: MERZ
  Company Number: GB-Merz Pharmaceuticals GmbH-2025110000068

PATIENT

DRUGS (1)
  1. BOCOUTURE [Suspect]
     Active Substance: BOTULINUM TOXIN TYPE A
     Indication: Product used for unknown indication

REACTIONS (1)
  - Graves^ disease [Unknown]
